FAERS Safety Report 9749246 (Version 1)
Quarter: 2013Q4

REPORT INFORMATION
  Report Type: Spontaneous
  Country: US (occurrence: US)
  Receive Date: 20131212
  Receipt Date: 20131212
  Transmission Date: 20140711
  Serious: No
  Sender: FDA-Public Use
  Company Number: US-INCYTE CORPORATION-2013IN002543

PATIENT
  Sex: Male
  Weight: 86 kg

DRUGS (10)
  1. JAKAFI [Suspect]
     Indication: MYELOFIBROSIS
     Dosage: 5 MG, BID
     Route: 048
     Dates: start: 201309
  2. JANUVIA [Concomitant]
     Dosage: 100 MG
  3. FUROSEMIDE [Concomitant]
     Dosage: 40 MG
  4. POTASSIUM CL ER [Concomitant]
     Dosage: 20 MEQ
  5. METFORMIN HCL [Concomitant]
     Dosage: 500 MG
  6. SIMVASTATIN [Concomitant]
     Dosage: 20 MG
  7. TAMSULOSIN HYDROCHLORIDE [Concomitant]
     Dosage: 0.4 MG
  8. GLYBURIDE [Concomitant]
     Dosage: 5 MG
  9. OMEPRAZOLE [Concomitant]
     Dosage: 20 MG
  10. ALPRAZOLAM [Concomitant]

REACTIONS (2)
  - Fatigue [Unknown]
  - Drug dose omission [Unknown]
